FAERS Safety Report 9075939 (Version 1)
Quarter: 2013Q1

REPORT INFORMATION
  Report Type: Report from Study
  Country: JP (occurrence: JP)
  Receive Date: 20130129
  Receipt Date: 20130129
  Transmission Date: 20140127
  Serious: Yes (Other)
  Sender: FDA-Public Use
  Company Number: JP-GILEAD-2013-0068648

PATIENT
  Age: 53 Year
  Sex: Male

DRUGS (9)
  1. AMBRISENTAN [Suspect]
     Indication: PULMONARY ARTERIAL HYPERTENSION
     Dosage: 2.5 MG, QD
     Route: 048
     Dates: start: 20101028
  2. PREDNISOLONE [Concomitant]
     Indication: INTERSTITIAL LUNG DISEASE
     Route: 042
  3. MUCODYNE [Concomitant]
     Indication: ASTHMA
  4. REBAMIPIDE [Concomitant]
     Indication: GASTRITIS
  5. CICLOSPORIN [Concomitant]
     Indication: INTERSTITIAL LUNG DISEASE
  6. KETAS [Concomitant]
     Indication: ASTHMA
  7. HALCION [Concomitant]
     Indication: INSOMNIA
     Route: 048
  8. MYSLEE [Concomitant]
     Indication: INSOMNIA
     Route: 048
  9. MYSLEE [Concomitant]
     Route: 042

REACTIONS (1)
  - Cardiac failure [Recovering/Resolving]
